FAERS Safety Report 5334930-3 (Version None)
Quarter: 2007Q2

REPORT INFORMATION
  Report Type: 
  Country: None (occurrence: None)
  Receive Date: 20070525
  Receipt Date: 20060529
  Transmission Date: 20071010
  Serious: Yes (Other)
  Sender: FDA-Public Use
  Company Number: JP-ROCHE-427836

PATIENT
  Age: 30 Year
  Sex: Female

DRUGS (5)
  1. HORIZON [Suspect]
     Indication: ANAESTHESIA
     Route: 042
     Dates: start: 20051019, end: 20051019
  2. PENTAZOCINE LACTATE [Concomitant]
     Indication: ANAESTHESIA
     Route: 042
     Dates: start: 20051019, end: 20051019
  3. METENARIN [Concomitant]
     Indication: PROPHYLAXIS OF ABORTION
     Route: 042
     Dates: start: 20051019, end: 20051019
  4. VEEN-F [Concomitant]
     Route: 042
     Dates: start: 20051019, end: 20051019
  5. ZANTAC [Concomitant]
     Indication: PROPHYLAXIS AGAINST GASTROINTESTINAL ULCER
     Route: 042
     Dates: start: 20051019, end: 20051019

REACTIONS (1)
  - THROMBOPHLEBITIS [None]
